FAERS Safety Report 24602933 (Version 1)
Quarter: 2024Q4

REPORT INFORMATION
  Report Type: Spontaneous
  Country: US (occurrence: None)
  Receive Date: 20241108
  Receipt Date: 20241108
  Transmission Date: 20250115
  Serious: No
  Sender: Public
  Company Number: None

PATIENT
  Age: 71 Year
  Sex: Female

DRUGS (4)
  1. NUPLAZID [Suspect]
     Active Substance: PIMAVANSERIN TARTRATE
     Indication: Parkinson^s disease
     Dates: start: 20230317
  2. CARBIDOPA [Concomitant]
  3. LEVODOPA [Concomitant]
  4. VENLAFAXINE ER 75 [Concomitant]

REACTIONS (1)
  - Death [None]
